FAERS Safety Report 25249111 (Version 1)
Quarter: 2025Q2

REPORT INFORMATION
  Report Type: Spontaneous
  Country: US (occurrence: US)
  Receive Date: 20250429
  Receipt Date: 20250429
  Transmission Date: 20250716
  Serious: Yes (Other)
  Sender: AUROBINDO
  Company Number: US-MYLANLABS-2013S1017923

PATIENT
  Age: 45 Year
  Sex: Male

DRUGS (9)
  1. PAROXETINE [Interacting]
     Active Substance: PAROXETINE
     Indication: Major depression
     Route: 065
  2. PAROXETINE [Interacting]
     Active Substance: PAROXETINE
     Route: 065
  3. PAROXETINE [Interacting]
     Active Substance: PAROXETINE
     Route: 065
  4. PAROXETINE [Interacting]
     Active Substance: PAROXETINE
     Route: 065
  5. ZOLPIDEM [Interacting]
     Active Substance: ZOLPIDEM TARTRATE
     Indication: Major depression
     Route: 048
  6. ZOLPIDEM [Interacting]
     Active Substance: ZOLPIDEM TARTRATE
     Indication: Insomnia
     Route: 048
  7. LORAZEPAM [Concomitant]
     Active Substance: LORAZEPAM
     Indication: Major depression
     Route: 065
  8. QUETIAPINE [Concomitant]
     Active Substance: QUETIAPINE
     Indication: Major depression
     Route: 065
  9. QUETIAPINE [Concomitant]
     Active Substance: QUETIAPINE
     Route: 065

REACTIONS (5)
  - Aggression [Unknown]
  - Amnesia [Unknown]
  - Homicide [Unknown]
  - Drug interaction [Unknown]
  - Extra dose administered [Unknown]
